FAERS Safety Report 12183722 (Version 1)
Quarter: 2016Q1

REPORT INFORMATION
  Report Type: Spontaneous
  Country: US (occurrence: US)
  Receive Date: 20160316
  Receipt Date: 20160316
  Transmission Date: 20160526
  Serious: Yes (Other)
  Sender: FDA-Public Use
  Company Number: US-BEH-2016060029

PATIENT
  Sex: Female
  Weight: 64 kg

DRUGS (23)
  1. DIPHENHYDRAMINE. [Concomitant]
     Active Substance: DIPHENHYDRAMINE
  2. EPIPEN [Concomitant]
     Active Substance: EPINEPHRINE
  3. LYRICA [Concomitant]
     Active Substance: PREGABALIN
  4. ASPIRIN. [Concomitant]
     Active Substance: ASPIRIN
  5. SULFAZINE [Concomitant]
     Active Substance: SULFASALAZINE
  6. NEXIUM [Concomitant]
     Active Substance: ESOMEPRAZOLE MAGNESIUM
  7. CRESTOR [Concomitant]
     Active Substance: ROSUVASTATIN CALCIUM
  8. MULTIVITAMINS [Concomitant]
     Active Substance: VITAMINS
  9. RED YEAST RICE [Concomitant]
     Active Substance: DIETARY SUPPLEMENT
  10. LIDOCAINE/PRILOCAINE [Concomitant]
  11. FAMOTIDINE. [Concomitant]
     Active Substance: FAMOTIDINE
  12. LEVOTHYROXINE. [Concomitant]
     Active Substance: LEVOTHYROXINE
  13. OMEGA 3 FISH OIL [Concomitant]
     Active Substance: FISH OIL\OMEGA-3 FATTY ACIDS
  14. CALCIUM MAGNESIUM AND ZINC [Concomitant]
  15. HIZENTRA [Suspect]
     Active Substance: HUMAN IMMUNOGLOBULIN G
     Indication: IMMUNODEFICIENCY COMMON VARIABLE
     Dosage: 4 GM 20 ML VIALS
     Route: 058
  16. SINGULAIR [Concomitant]
     Active Substance: MONTELUKAST SODIUM
  17. MULTIVITAMINS [Concomitant]
     Active Substance: VITAMINS
  18. DUONEB [Concomitant]
     Active Substance: ALBUTEROL SULFATE\IPRATROPIUM BROMIDE
  19. LMX [Concomitant]
     Active Substance: LIDOCAINE
  20. ZANAFLEX [Concomitant]
     Active Substance: TIZANIDINE HYDROCHLORIDE
  21. ZOLOFT [Concomitant]
     Active Substance: SERTRALINE HYDROCHLORIDE
  22. HYDROXYCHLOROQUINE [Concomitant]
     Active Substance: HYDROXYCHLOROQUINE
  23. SYMBICORT [Concomitant]
     Active Substance: BUDESONIDE\FORMOTEROL FUMARATE DIHYDRATE

REACTIONS (2)
  - Sinusitis [Unknown]
  - Lung infection [Unknown]
